FAERS Safety Report 8672780 (Version 2)
Quarter: 2012Q4

REPORT INFORMATION
  Report Type: 
  Country: DE (occurrence: DE)
  Receive Date: 20120719
  Receipt Date: 20121218
  Transmission Date: 20130627
  Serious: Yes (Life-Threatening)
  Sender: FDA-Public Use
  Company Number: DE-SANOFI-AVENTIS-2012SA049924

PATIENT
  Age: 70 Year
  Sex: Female
  Weight: 81.1 kg

DRUGS (4)
  1. LEFLUNOMIDE [Suspect]
     Indication: RHEUMATOID ARTHRITIS
     Route: 048
     Dates: start: 201106, end: 201111
  2. PIPOBROMAN [Suspect]
     Indication: THROMBOCYTOSIS
     Dosage: 2x25 mg
     Route: 048
     Dates: start: 201105, end: 201109
  3. PIPOBROMAN [Suspect]
     Indication: THROMBOCYTOSIS
     Dosage: 1x25 mg
     Route: 048
     Dates: start: 201109, end: 201111
  4. PIPOBROMAN [Suspect]
     Indication: THROMBOCYTOSIS
     Dosage: 25 mg/ alle 3 d
     Route: 048
     Dates: start: 201111, end: 201111

REACTIONS (3)
  - Bone marrow failure [Not Recovered/Not Resolved]
  - Agranulocytosis [Not Recovered/Not Resolved]
  - Pancytopenia [Not Recovered/Not Resolved]
